FAERS Safety Report 8810334 (Version 4)
Quarter: 2013Q1

REPORT INFORMATION
  Report Type: Spontaneous
  Country: US (occurrence: US)
  Receive Date: 20120926
  Receipt Date: 20130329
  Transmission Date: 20140127
  Serious: Yes (Hospitalization, Disabling, Other)
  Sender: FDA-Public Use
  Company Number: US-009507513-1111USA03485

PATIENT
  Sex: Female
  Weight: 63.49 kg

DRUGS (8)
  1. FOSAMAX [Suspect]
     Indication: OSTEOPENIA
     Dosage: 70 MG, QW
     Route: 048
     Dates: start: 200612
  2. FOSAMAX [Suspect]
     Indication: OSTEOPENIA
     Dosage: 70 MG, QW
     Route: 048
  3. LISINOPRIL [Concomitant]
     Indication: HYPERTENSION
     Dosage: 5 MG, UNK
     Route: 048
  4. VITAMINS (UNSPECIFIED) [Concomitant]
     Dosage: UNK, QD
     Dates: start: 1993
  5. CALCIUM (UNSPECIFIED) [Concomitant]
     Dosage: UNK, QD
     Dates: start: 1993
  6. VITAMIN B (UNSPECIFIED) [Concomitant]
     Dosage: UNK
     Dates: start: 1993
  7. ZOCOR [Concomitant]
     Indication: BLOOD CHOLESTEROL INCREASED
     Dosage: UNK
     Dates: start: 2003
  8. PLENDIL [Concomitant]
     Indication: HYPERTENSION
     Dosage: UNK
     Dates: start: 2003

REACTIONS (45)
  - Femur fracture [Recovered/Resolved]
  - Intramedullary rod insertion [Unknown]
  - Osteonecrosis [Unknown]
  - Gastroenteritis [Recovering/Resolving]
  - Foot fracture [Unknown]
  - Impaired healing [Unknown]
  - Bunion [Not Recovered/Not Resolved]
  - Oropharyngeal pain [Unknown]
  - Cough [Unknown]
  - Dyspnoea [Unknown]
  - Sensory disturbance [Unknown]
  - Chest pain [Unknown]
  - Fatigue [Recovering/Resolving]
  - Cough [Unknown]
  - Uterine haemorrhage [Unknown]
  - Flushing [Unknown]
  - Dry eye [Unknown]
  - Eye irritation [Unknown]
  - Cataract cortical [Unknown]
  - Upper respiratory tract infection [Unknown]
  - Heat cramps [Unknown]
  - Synovial cyst [Unknown]
  - Bunion [Unknown]
  - Laboratory test abnormal [Unknown]
  - Dermatitis [Unknown]
  - Vision blurred [Unknown]
  - Muscle strain [Unknown]
  - Refusal of treatment by patient [Unknown]
  - Marital problem [Unknown]
  - Dyspareunia [Unknown]
  - Blood pressure increased [Unknown]
  - Treatment noncompliance [Unknown]
  - Neurodermatitis [Unknown]
  - Cough [Unknown]
  - Osteoporosis [Unknown]
  - Fall [Unknown]
  - Medical device removal [Unknown]
  - Foot fracture [Recovering/Resolving]
  - Limb injury [Recovering/Resolving]
  - Gastrooesophageal reflux disease [Unknown]
  - Oesophagitis [Unknown]
  - Dizziness [Unknown]
  - Dyspepsia [Unknown]
  - Headache [Unknown]
  - Constipation [Unknown]
